FAERS Safety Report 9648914 (Version 2)
Quarter: 2013Q4

REPORT INFORMATION
  Report Type: Spontaneous
  Country: US (occurrence: None)
  Receive Date: 20131018
  Receipt Date: 20131126
  Transmission Date: 20140711
  Serious: Yes (Disabling)
  Sender: FDA-Public Use
  Company Number: AEGR000106

PATIENT
  Age: 66 Year
  Sex: Female
  Weight: 89.8 kg

DRUGS (14)
  1. JUXTAPID [Suspect]
     Indication: TYPE IIA HYPERLIPIDAEMIA
     Route: 048
     Dates: start: 201305, end: 20130722
  2. ZETIA (EZETIMIBE) [Concomitant]
  3. WELCHOL (COLESEVELAM HYDROCHLORIDE) [Concomitant]
  4. LIVALO (PITAVASTATIN CALCIUM) [Concomitant]
  5. CARVEDILOL (CARVEDILOL) [Concomitant]
  6. RANEXA (RANOLAZINE) [Concomitant]
  7. CO Q 10 (UBIDECARENONE) [Concomitant]
  8. ASPIRIN (ACETYLSALICYLIC ACID) [Concomitant]
  9. ALENDRONATE (ALENDRONATE SODIUM) [Concomitant]
  10. VITAMIN D3 (VITAMIN D3) [Concomitant]
  11. NIASPAN (NICOTINIC ACID) [Concomitant]
  12. FISH OIL (FISH OIL) [Concomitant]
  13. VITAMIN E (TOCOPHERYL ACETATE) [Concomitant]
  14. VITAMIN D (ERGOCALCIFEROL) [Concomitant]

REACTIONS (8)
  - Joint stiffness [None]
  - Muscular weakness [None]
  - Inappropriate schedule of drug administration [None]
  - Aspartate aminotransferase increased [None]
  - Alanine aminotransferase increased [None]
  - Myalgia [None]
  - Asthenia [None]
  - Gastrointestinal disorder [None]
